FAERS Safety Report 9458138 (Version 1)
Quarter: 2013Q3

REPORT INFORMATION
  Report Type: Spontaneous
  Country: US (occurrence: US)
  Receive Date: 20130814
  Receipt Date: 20130814
  Transmission Date: 20140515
  Serious: Yes (Other)
  Sender: FDA-Public Use
  Company Number: US-JNJFOC-20130803370

PATIENT
  Age: 76 Year
  Sex: Male

DRUGS (13)
  1. ZYTIGA [Suspect]
     Indication: PROSTATE CANCER METASTATIC
     Dosage: 4 TABLETS OF 250 MG AT ONCE
     Route: 048
     Dates: start: 201306
  2. PROCRIT [Interacting]
     Indication: BLOOD TESTOSTERONE INCREASED
     Route: 065
  3. PREDNISONE [Concomitant]
     Route: 048
     Dates: start: 201306
  4. PROAMATINE [Concomitant]
     Route: 065
  5. XGEVA [Concomitant]
     Route: 065
  6. LUNESTA [Concomitant]
     Route: 065
  7. CALTRATE D [Concomitant]
     Route: 065
  8. VITAMIN D [Concomitant]
     Route: 065
  9. CRESTOR [Concomitant]
     Route: 065
  10. LUPRON [Concomitant]
     Route: 065
  11. PACERONE [Concomitant]
     Route: 065
  12. MIRALAX [Concomitant]
     Route: 065
  13. NITROGLYCERIN [Concomitant]
     Route: 065

REACTIONS (6)
  - Hypotension [Not Recovered/Not Resolved]
  - Poor peripheral circulation [Not Recovered/Not Resolved]
  - Parkinson^s disease [Unknown]
  - Incorrect dose administered [Recovered/Resolved]
  - Drug interaction [Unknown]
  - Drug ineffective [Unknown]
